FAERS Safety Report 6776282-8 (Version None)
Quarter: 2010Q2

REPORT INFORMATION
  Report Type: 
  Country: None (occurrence: None)
  Receive Date: 20100615
  Receipt Date: 20100608
  Transmission Date: 20101027
  Serious: No
  Sender: FDA-Public Use
  Company Number: 2010SP027495

PATIENT
  Age: 66 Year
  Sex: Male

DRUGS (3)
  1. CLARITIN-D 24 HOUR [Suspect]
     Indication: PULMONARY CONGESTION
     Dosage: 10 MG; ONCE; PO
     Route: 048
     Dates: start: 20100515, end: 20100515
  2. SINGULAIR [Concomitant]
  3. UROXATRAL [Concomitant]

REACTIONS (1)
  - URINARY TRACT DISORDER [None]
